FAERS Safety Report 5006724-X (Version None)
Quarter: 2006Q2

REPORT INFORMATION
  Report Type: 
  Country: None (occurrence: None)
  Receive Date: 20060519
  Receipt Date: 20060516
  Transmission Date: 20061013
  Serious: Yes (Hospitalization)
  Sender: FDA-Public Use
  Company Number: DE-MERCK-0605DEU00146

PATIENT
  Age: 65 Year
  Sex: Male

DRUGS (7)
  1. ZETIA [Suspect]
     Indication: HYPERCHOLESTEROLAEMIA
     Route: 048
     Dates: start: 20050501, end: 20060508
  2. ZETIA [Suspect]
     Indication: HYPERTRIGLYCERIDAEMIA
     Route: 048
     Dates: start: 20050501, end: 20060508
  3. ZOCOR [Suspect]
     Indication: HYPERCHOLESTEROLAEMIA
     Route: 048
     Dates: start: 19990101, end: 20060508
  4. ZOCOR [Suspect]
     Indication: HYPERTRIGLYCERIDAEMIA
     Route: 048
     Dates: start: 19990101, end: 20060508
  5. ASPIRIN [Concomitant]
     Route: 065
  6. ENALAPRIL MALEATE [Concomitant]
     Route: 065
  7. ISOSORBIDE DINITRATE [Concomitant]
     Route: 065

REACTIONS (2)
  - CORONARY ARTERY DISEASE [None]
  - MYALGIA [None]
